FAERS Safety Report 19271864 (Version 1)
Quarter: 2021Q2

REPORT INFORMATION
  Report Type: Spontaneous
  Country: US (occurrence: US)
  Receive Date: 20210519
  Receipt Date: 20210519
  Transmission Date: 20210717
  Serious: No
  Sender: FDA-Public Use
  Company Number: US-NOVEN PHARMACEUTICALS, INC.-2020US002207

PATIENT
  Age: 17 Year
  Sex: Male
  Weight: 68.93 kg

DRUGS (4)
  1. REMICADE [Concomitant]
     Active Substance: INFLIXIMAB
     Indication: CROHN^S DISEASE
     Dosage: 400 MG, EVERY 8 WEEKS
     Route: 042
  2. DAYTRANA [Suspect]
     Active Substance: METHYLPHENIDATE
     Dosage: 20 MG
     Route: 062
     Dates: start: 20200411, end: 20200411
  3. DAYTRANA [Suspect]
     Active Substance: METHYLPHENIDATE
     Dosage: 20 MG
     Route: 062
     Dates: start: 2019, end: 202003
  4. DAYTRANA [Suspect]
     Active Substance: METHYLPHENIDATE
     Indication: ATTENTION DEFICIT HYPERACTIVITY DISORDER
     Dosage: 10 MG
     Route: 062
     Dates: start: 201909, end: 2019

REACTIONS (2)
  - Pruritus [Recovered/Resolved]
  - Irritability [Recovered/Resolved]

NARRATIVE: CASE EVENT DATE: 20200411
